FAERS Safety Report 13100717 (Version 2)
Quarter: 2017Q1

REPORT INFORMATION
  Report Type: Report from Study
  Country: US (occurrence: US)
  Receive Date: 20170110
  Receipt Date: 20170329
  Transmission Date: 20170428
  Serious: Yes (Life-Threatening, Hospitalization)
  Sender: FDA-Public Use
  Company Number: PHEH2017US000942

PATIENT
  Sex: Female

DRUGS (1)
  1. GILENYA [Suspect]
     Active Substance: FINGOLIMOD HYDROCHLORIDE
     Indication: MULTIPLE SCLEROSIS
     Dosage: 0.5 MG, QD
     Route: 048
     Dates: start: 20161102

REACTIONS (5)
  - Blood potassium decreased [Unknown]
  - Electrocardiogram abnormal [Unknown]
  - Pneumonia [Unknown]
  - Feeling abnormal [Unknown]
  - Blood magnesium decreased [Unknown]
